FAERS Safety Report 25231764 (Version 1)
Quarter: 2025Q2

REPORT INFORMATION
  Report Type: Spontaneous
  Country: US (occurrence: None)
  Receive Date: 20250423
  Receipt Date: 20250423
  Transmission Date: 20250716
  Serious: Yes (Hospitalization, Other)
  Sender: FDA-CTU
  Company Number: None

PATIENT
  Age: 61 Year
  Sex: Male
  Weight: 76.5 kg

DRUGS (1)
  1. VANCOMYCIN [Suspect]
     Active Substance: VANCOMYCIN
     Indication: Skin infection
     Route: 041
     Dates: start: 20250421, end: 20250421

REACTIONS (9)
  - Dialysis [None]
  - Infusion related reaction [None]
  - Lethargy [None]
  - Drooling [None]
  - Salivary hypersecretion [None]
  - Swollen tongue [None]
  - Therapy interrupted [None]
  - Confusional state [None]
  - Hyperhidrosis [None]

NARRATIVE: CASE EVENT DATE: 20250421
